FAERS Safety Report 11008859 (Version 1)
Quarter: 2015Q2

REPORT INFORMATION
  Report Type: Spontaneous
  Country: US (occurrence: None)
  Receive Date: 20150408
  Receipt Date: 20150408
  Transmission Date: 20150821
  Serious: Yes (Other)
  Sender: FDA-Public Use
  Company Number: 001894751A

PATIENT
  Sex: Male

DRUGS (2)
  1. PROACTIV REPAIRING TREATMENT [Suspect]
     Active Substance: BENZOYL PEROXIDE
     Indication: ACNE
     Route: 062
     Dates: start: 20150306, end: 20150312
  2. PROACTIV RENEWING CLEANSER [Suspect]
     Active Substance: BENZOYL PEROXIDE
     Indication: ACNE
     Route: 062
     Dates: start: 20150306, end: 20150312

REACTIONS (2)
  - Acne [None]
  - Hypersensitivity [None]

NARRATIVE: CASE EVENT DATE: 20150312
